FAERS Safety Report 5671331-2 (Version None)
Quarter: 2008Q1

REPORT INFORMATION
  Report Type: 
  Country: None (occurrence: None)
  Receive Date: 20080313
  Receipt Date: 20080307
  Transmission Date: 20080703
  Serious: Yes (Other)
  Sender: FDA-Public Use
  Company Number: PYLE-2008-005-F-UP #1

PATIENT
  Age: 29 Year
  Sex: Male
  Weight: 82.5547 kg

DRUGS (1)
  1. PYLERA [Suspect]
     Indication: HELICOBACTER INFECTION
     Dosage: 12 PILLS, 3 DAYS, PO
     Route: 048
     Dates: start: 20080216, end: 20080219

REACTIONS (1)
  - OROPHARYNGEAL BLISTERING [None]
